APPROVED DRUG PRODUCT: IBUPROFEN AND PHENYLEPHRINE HYDROCHLORIDE
Active Ingredient: IBUPROFEN; PHENYLEPHRINE HYDROCHLORIDE
Strength: 200MG;10MG
Dosage Form/Route: TABLET;ORAL
Application: A203200 | Product #001
Applicant: PERRIGO R AND D CO
Approved: Jul 3, 2014 | RLD: No | RS: No | Type: OTC